FAERS Safety Report 6510029-5 (Version None)
Quarter: 2009Q4

REPORT INFORMATION
  Report Type: 
  Country: None (occurrence: None)
  Receive Date: 20091222
  Receipt Date: 20091201
  Transmission Date: 20100525
  Serious: Yes (Other)
  Sender: FDA-Public Use
  Company Number: US-ROCHE-675536

PATIENT
  Sex: Male

DRUGS (14)
  1. BEVACIZUMAB [Suspect]
     Route: 042
     Dates: start: 20090610
  2. BEVACIZUMAB [Suspect]
     Route: 042
  3. BLINDED AMG 655 [Suspect]
     Dosage: WITHHELD
     Route: 042
     Dates: start: 20090610
  4. OXALIPLATIN [Suspect]
     Dosage: WITHHELD
     Route: 042
     Dates: start: 20090610
  5. FLUOROURACIL [Suspect]
     Dosage: WITHHELD
     Route: 042
     Dates: start: 20090610
  6. FLUOROURACIL [Suspect]
     Route: 042
  7. FOLINIC ACID [Suspect]
     Dosage: WITHHELD
     Route: 042
     Dates: start: 20090610
  8. FOLINIC ACID [Suspect]
     Route: 042
  9. ESOMEPRAZOLE MAGNESIUM [Concomitant]
  10. DIAZEPAM [Concomitant]
  11. ACTONEL [Concomitant]
  12. ASPIRIN [Concomitant]
  13. CALCIUM [Concomitant]
  14. MEGESTROL ACETATE [Concomitant]

REACTIONS (1)
  - MUCOSAL INFLAMMATION [None]
